FAERS Safety Report 12267004 (Version 2)
Quarter: 2020Q2

REPORT INFORMATION
  Report Type: Spontaneous
  Country: US (occurrence: US)
  Receive Date: 20160414
  Receipt Date: 20200407
  Transmission Date: 20200713
  Serious: No
  Sender: FDA-Public Use
  Company Number: US-PFIZER INC-2016169780

PATIENT
  Age: 43 Year
  Sex: Female

DRUGS (7)
  1. OXYTROL FOR WOMEN [Concomitant]
     Active Substance: OXYBUTYNIN
     Dosage: 3.9 MG, 1X/DAY (CHANGE PATCH EVERY 4 DAYS)
  2. DIALYVITE 5000 [Concomitant]
     Active Substance: .ALPHA.-TOCOPHEROL SUCCINATE, D-\ASCORBIC ACID\BIOTIN\CALCIUM PANTOTHENATE\COBALAMIN\FOLIC ACID\NIACINAMIDE\PYRIDOXINE HYDROCHLORIDE\RIBOFLAVIN\SELENOCYSTEINE\THIAMINE MONONITRATE\ZINC CITRATE
     Dosage: 5000 IU, 2X/WEEK
     Route: 048
  3. COLESTIPOL HCL [Concomitant]
     Active Substance: COLESTIPOL HYDROCHLORIDE
     Dosage: 1 G, AS NEEDED
     Route: 048
  4. LYRICA [Suspect]
     Active Substance: PREGABALIN
     Dosage: UNK, 3X/DAY (25 MG CAPSULE, ONE IN THE AM, ONE IN THE PM, AND TWO AT BEDTIME)
     Route: 048
  5. OMEPRAZOLE. [Concomitant]
     Active Substance: OMEPRAZOLE
     Dosage: 20 MG, AS NEEDED (EVERY DAY)
     Route: 048
  6. MAGNESIUM CITRATE. [Concomitant]
     Active Substance: MAGNESIUM CITRATE
     Dosage: 325 MG, DAILY
  7. LYRICA [Suspect]
     Active Substance: PREGABALIN
     Dosage: UNK, 4X/DAY (TAKE 1 CAPSULE BY MOUTH TWICE A DAY AND 2 CAPSULES AT BEDTIME)
     Route: 048

REACTIONS (1)
  - Spinal pain [Unknown]
